FAERS Safety Report 6494465-1 (Version None)
Quarter: 2009Q4

REPORT INFORMATION
  Report Type: 
  Country: None (occurrence: None)
  Receive Date: 20091214
  Receipt Date: 20090220
  Transmission Date: 20100525
  Serious: Yes (Hospitalization)
  Sender: FDA-Public Use
  Company Number: US-BRISTOL-MYERS SQUIBB COMPANY-14514715

PATIENT
  Sex: Female

DRUGS (2)
  1. ABILIFY [Suspect]
     Indication: BIPOLAR DISORDER
     Dosage: FOR APPROXIMATELY 2-3 YRS
  2. ABILIFY [Suspect]
     Indication: SCHIZOPHRENIA
     Dosage: FOR APPROXIMATELY 2-3 YRS

REACTIONS (1)
  - BLOOD GLUCOSE INCREASED [None]
